FAERS Safety Report 5127925-6 (Version None)
Quarter: 2006Q4

REPORT INFORMATION
  Report Type: 
  Country: None (occurrence: None)
  Receive Date: 20061013
  Receipt Date: 20061013
  Transmission Date: 20070319
  Serious: Yes (Life-Threatening, Hospitalization)
  Sender: FDA-Public Use
  Company Number: None

PATIENT
  Age: 56 Year
  Sex: Male
  Weight: 93.8946 kg

DRUGS (1)
  1. THALIDOMIDE [Suspect]
     Indication: MULTIPLE MYELOMA
     Dosage: 200MG PO QHS
     Route: 048

REACTIONS (3)
  - ASTHENIA [None]
  - DIZZINESS [None]
  - PULMONARY EMBOLISM [None]
